FAERS Safety Report 5429762-1 (Version None)
Quarter: 2007Q3

REPORT INFORMATION
  Report Type: 
  Country: None (occurrence: None)
  Receive Date: 20070829
  Receipt Date: 20070221
  Transmission Date: 20080115
  Serious: No
  Sender: FDA-Public Use
  Company Number: A0640832A

PATIENT
  Sex: Male

DRUGS (3)
  1. LITHIUM CARBONATE [Suspect]
     Indication: BIPOLAR II DISORDER
  2. LAMICTAL [Suspect]
     Indication: BIPOLAR II DISORDER
     Dosage: 500MG PER DAY
     Route: 048
  3. WELLBUTRIN [Suspect]
     Indication: DEPRESSION
     Route: 048

REACTIONS (2)
  - ADVERSE DRUG REACTION [None]
  - THERAPEUTIC RESPONSE UNEXPECTED [None]
